FAERS Safety Report 10903337 (Version 2)
Quarter: 2015Q2

REPORT INFORMATION
  Report Type: Spontaneous
  Country: US (occurrence: None)
  Receive Date: 20150304
  Receipt Date: 20150504
  Transmission Date: 20150821
  Serious: Yes (Other)
  Sender: FDA-Public Use
  Company Number: 2015-10781

PATIENT
  Age: 95 Year
  Sex: Female

DRUGS (2)
  1. AVASTIN [Suspect]
     Active Substance: BEVACIZUMAB
     Indication: PRODUCT USED FOR UNKNOWN INDICATION
     Dates: start: 20150107, end: 20150107
  2. EYLEA [Suspect]
     Active Substance: AFLIBERCEPT
     Indication: AGE-RELATED MACULAR DEGENERATION
     Route: 031
     Dates: start: 20130919, end: 20141105

REACTIONS (5)
  - Visual acuity reduced [None]
  - Vitritis [None]
  - Blindness transient [None]
  - Endophthalmitis [None]
  - Off label use [None]

NARRATIVE: CASE EVENT DATE: 20150122
